FAERS Safety Report 17536014 (Version 1)
Quarter: 2020Q1

REPORT INFORMATION
  Report Type: Spontaneous
  Country: PT (occurrence: PT)
  Receive Date: 20200313
  Receipt Date: 20200313
  Transmission Date: 20200409
  Serious: Yes (Other)
  Sender: FDA-Public Use
  Company Number: PT-SA-2020SA062641

PATIENT
  Age: 26 Year
  Sex: Male

DRUGS (16)
  1. ANTI-THYMOCYTE GLOBULIN (RABBIT) NOS [Suspect]
     Active Substance: LAPINE T-LYMPHOCYTE IMMUNE GLOBULIN
     Indication: PROPHYLAXIS AGAINST TRANSPLANT REJECTION
     Dosage: 2000MG 8 DAYS
     Route: 042
     Dates: start: 20150615, end: 20150623
  2. CARVEDILOL. [Concomitant]
     Active Substance: CARVEDILOL
  3. MYCOSTATIN [Concomitant]
     Active Substance: NYSTATIN
     Route: 048
  4. COTRIMOXAZOLE [Concomitant]
     Active Substance: SULFAMETHOXAZOLE\TRIMETHOPRIM
     Dosage: 1/2 TABLET/DAY
  5. PANTOPRAZOLE [Concomitant]
     Active Substance: PANTOPRAZOLE
  6. HUMAN NORMAL IMMUNOGLOBULIN [Concomitant]
     Active Substance: HUMAN IMMUNOGLOBULIN G
  7. METHYLPREDNISOLONE. [Concomitant]
     Active Substance: METHYLPREDNISOLONE
     Dosage: UNK
  8. ADALAT CC [Concomitant]
     Active Substance: NIFEDIPINE
     Route: 048
  9. MYCOPHENOLATE MOFETIL. [Concomitant]
     Active Substance: MYCOPHENOLATE MOFETIL
     Dosage: 500 + 500 MG/DAY
  10. VALGANCICLOVIR. [Concomitant]
     Active Substance: VALGANCICLOVIR
  11. TACROLIMUS. [Concomitant]
     Active Substance: TACROLIMUS
     Dosage: 2 + 2 MG/DAY
  12. BROMAZEPAM [Concomitant]
     Active Substance: BROMAZEPAM
  13. FUROSEMIDE. [Concomitant]
     Active Substance: FUROSEMIDE
  14. RITUXIMAB. [Concomitant]
     Active Substance: RITUXIMAB
  15. PREDNISONE. [Concomitant]
     Active Substance: PREDNISONE
  16. EPOETIN BETA [Concomitant]
     Active Substance: ERYTHROPOIETIN
     Route: 058

REACTIONS (1)
  - Haemolytic anaemia [Recovered/Resolved]

NARRATIVE: CASE EVENT DATE: 20150626
